FAERS Safety Report 21083205 (Version 1)
Quarter: 2022Q3

REPORT INFORMATION
  Report Type: Spontaneous
  Country: US (occurrence: US)
  Receive Date: 20220714
  Receipt Date: 20220714
  Transmission Date: 20221027
  Serious: No
  Sender: FDA-Public Use
  Company Number: US-PALATIN TECHNOLOGIES, INC.-US-PALA-22-000019

PATIENT
  Sex: Female

DRUGS (1)
  1. VYLEESI [Suspect]
     Active Substance: BREMELANOTIDE ACETATE
     Indication: Product used for unknown indication
     Dosage: 1 DOSE

REACTIONS (2)
  - Vomiting [Unknown]
  - Therapeutic product effect delayed [Unknown]
